FAERS Safety Report 5789433-9 (Version None)
Quarter: 2008Q2

REPORT INFORMATION
  Report Type: 
  Country: None (occurrence: None)
  Receive Date: 20080626
  Receipt Date: 20080204
  Transmission Date: 20081010
  Serious: No
  Sender: FDA-Public Use
  Company Number: US-ASTRAZENECA-2008UW02309

PATIENT
  Age: 5 Year
  Sex: Female
  Weight: 18.1 kg

DRUGS (5)
  1. PULMICORT FLEXHALER [Suspect]
     Indication: ASTHMA
     Route: 055
     Dates: start: 20071201
  2. SINGULAIR [Concomitant]
     Route: 048
  3. MULTI-VITAMIN [Concomitant]
  4. PREDNISONE [Concomitant]
     Dates: start: 20071201, end: 20071201
  5. QVAR 40 [Concomitant]

REACTIONS (1)
  - HAIR GROWTH ABNORMAL [None]
